FAERS Safety Report 9162676 (Version 1)
Quarter: 2013Q1

REPORT INFORMATION
  Report Type: Spontaneous
  Country: US (occurrence: None)
  Receive Date: 20130206
  Receipt Date: 20130206
  Transmission Date: 20140127
  Serious: Yes (Other)
  Sender: FDA-Public Use
  Company Number: AUR-APL-2013-01212

PATIENT
  Age: 66 Year
  Sex: Female

DRUGS (9)
  1. PAROXETINE (PAROXETINE) [Suspect]
     Indication: PRODUCT USED FOR UNKNOWN INDICATION
  2. METHYLENE BLUE [Suspect]
     Indication: ENCEPHALOPATHY
     Route: 042
  3. METHYLENE BLUE [Suspect]
     Indication: CHEMOTHERAPY
     Route: 042
  4. IFOSFAMIDE [Suspect]
     Indication: CHEMOTHERAPY
  5. CARBOPLATIN (CABOPLATIN) [Concomitant]
  6. ETOPOSIDE (ETOPOSIDE) [Concomitant]
  7. BUPROPION (BUPROPION) [Concomitant]
  8. DEXAMETHASONE (DEXAMETHASONE) [Concomitant]
  9. APREPITANT (APREPITANT) [Concomitant]

REACTIONS (15)
  - Blood creatinine increased [None]
  - Serotonin syndrome [None]
  - Neurotoxicity [None]
  - Acidosis [None]
  - Alanine aminotransferase increased [None]
  - Aspartate aminotransferase increased [None]
  - Pleural effusion [None]
  - Pulmonary oedema [None]
  - Mental status changes [None]
  - Mydriasis [None]
  - Aspiration [None]
  - Infection [None]
  - Deep vein thrombosis [None]
  - Delirium [None]
  - Blood urea increased [None]
